FAERS Safety Report 5011947-X (Version None)
Quarter: 2006Q2

REPORT INFORMATION
  Report Type: 
  Country: None (occurrence: None)
  Receive Date: 20060526
  Receipt Date: 20051212
  Transmission Date: 20061013
  Serious: Yes (Hospitalization, Disabling)
  Sender: FDA-Public Use
  Company Number: US-ROCHE-428465

PATIENT
  Age: 18 Year
  Sex: Female
  Weight: 147 kg

DRUGS (3)
  1. ACCUTANE [Suspect]
     Indication: ACNE
     Route: 048
     Dates: start: 20010815, end: 20011215
  2. TYLENOL (GELTAB) [Concomitant]
     Indication: HEADACHE
  3. UNSPECIFIED ANTIBIOTICS [Concomitant]

REACTIONS (32)
  - ANOREXIA [None]
  - ANXIETY [None]
  - APHTHOUS STOMATITIS [None]
  - BACK PAIN [None]
  - BLOOD CHOLESTEROL INCREASED [None]
  - BLOOD TRIGLYCERIDES INCREASED [None]
  - COLITIS [None]
  - COLITIS ULCERATIVE [None]
  - CROHN'S DISEASE [None]
  - DEPRESSION [None]
  - ECZEMA NUMMULAR [None]
  - FATIGUE [None]
  - GASTRIC ULCER [None]
  - GASTROINTESTINAL DISORDER [None]
  - HEADACHE [None]
  - HERPES SIMPLEX [None]
  - INFLAMMATORY BOWEL DISEASE [None]
  - INSOMNIA [None]
  - INTESTINAL HAEMORRHAGE [None]
  - IRRITABLE BOWEL SYNDROME [None]
  - JOINT SWELLING [None]
  - LOBAR PNEUMONIA [None]
  - MEGACOLON [None]
  - MICROCYTIC ANAEMIA [None]
  - NECK INJURY [None]
  - NOCTURNAL DYSPNOEA [None]
  - OEDEMA PERIPHERAL [None]
  - OESOPHAGEAL ULCER [None]
  - PNEUMONIA [None]
  - SKIN PAPILLOMA [None]
  - UPPER RESPIRATORY TRACT INFECTION [None]
  - VENTRICULAR EXTRASYSTOLES [None]
